FAERS Safety Report 9962121 (Version 1)
Quarter: 2014Q1

REPORT INFORMATION
  Report Type: Report from Study
  Country: US (occurrence: US)
  Receive Date: 20140305
  Receipt Date: 20140305
  Transmission Date: 20141002
  Serious: No
  Sender: FDA-Public Use
  Company Number: US-ABBVIE-13P-163-1114796-00

PATIENT
  Age: 58 Year
  Sex: Female

DRUGS (10)
  1. HUMIRA [Suspect]
     Indication: RHEUMATOID ARTHRITIS
     Dates: start: 201209, end: 20130705
  2. METFORMIN [Concomitant]
     Indication: DIABETES MELLITUS
     Dosage: 500 MG ONE TWICE DAILY
  3. LEFLUNOMIDE [Concomitant]
     Indication: ARTHRITIS
     Dosage: 20 MG ONE DAILY
  4. PANTOPRAZOLE [Concomitant]
     Indication: GASTROOESOPHAGEAL REFLUX DISEASE
     Dosage: 40 MG ONE DAILY
  5. BENICARE HCT [Concomitant]
     Indication: HYPERTENSION
     Dosage: 12.5 MG ONE TWICE A DAY
  6. VITAMIN D [Concomitant]
     Indication: VITAMIN D DEFICIENCY
  7. AMBIEN [Concomitant]
     Indication: INSOMNIA
     Dosage: 10 MG AT NIGHT AS NEEDED
  8. GABAPENTIN [Concomitant]
     Indication: PAIN
  9. GABAPENTIN [Concomitant]
     Dates: start: 20130626
  10. TRIPLEX [Concomitant]
     Indication: PRODUCT USED FOR UNKNOWN INDICATION

REACTIONS (4)
  - Tooth extraction [Unknown]
  - Nasopharyngitis [Not Recovered/Not Resolved]
  - Musculoskeletal stiffness [Not Recovered/Not Resolved]
  - Drug effect incomplete [Not Recovered/Not Resolved]
